FAERS Safety Report 22059360 (Version 4)
Quarter: 2023Q2

REPORT INFORMATION
  Report Type: Spontaneous
  Country: US (occurrence: US)
  Receive Date: 20230303
  Receipt Date: 20230609
  Transmission Date: 20230722
  Serious: No
  Sender: FDA-Public Use
  Company Number: US-PFIZER INC-202300087129

PATIENT
  Age: 13 Year
  Sex: Female

DRUGS (1)
  1. GENOTROPIN [Suspect]
     Active Substance: SOMATROPIN
     Dosage: 1.6 ONE DAY 1.8 THE NEXT DAY
     Dates: start: 202302

REACTIONS (3)
  - Device use error [Unknown]
  - Drug dose omission by device [Not Recovered/Not Resolved]
  - Device difficult to use [Not Recovered/Not Resolved]
